FAERS Safety Report 24215084 (Version 1)
Quarter: 2024Q3

REPORT INFORMATION
  Report Type: Spontaneous
  Country: US (occurrence: US)
  Receive Date: 20240816
  Receipt Date: 20240816
  Transmission Date: 20241017
  Serious: No
  Sender: STRIDES
  Company Number: US-STRIDES ARCOLAB LIMITED-2024SP006957

PATIENT
  Age: 29 Year
  Sex: Male
  Weight: 68.027 kg

DRUGS (2)
  1. IBUPROFEN [Suspect]
     Active Substance: IBUPROFEN
     Indication: Tension headache
     Dosage: 3 DOSAGE FORM (THREE TABLETS ON 10 JUN 2024)
     Route: 048
     Dates: start: 20240610, end: 20240610
  2. IBUPROFEN [Suspect]
     Active Substance: IBUPROFEN
     Dosage: 1 DOSAGE FORM (ONE TABLET ON 11 JUN 2024)
     Route: 048
     Dates: start: 20240611, end: 20240611

REACTIONS (1)
  - Pruritus [Recovered/Resolved]

NARRATIVE: CASE EVENT DATE: 20240612
